FAERS Safety Report 21019039 (Version 1)
Quarter: 2022Q2

REPORT INFORMATION
  Report Type: Spontaneous
  Country: JP (occurrence: JP)
  Receive Date: 20220628
  Receipt Date: 20220628
  Transmission Date: 20220721
  Serious: Yes (Other)
  Sender: FDA-Public Use
  Company Number: JP-SA-2019SA206491

PATIENT
  Age: 76 Year
  Sex: Female

DRUGS (5)
  1. HERBESSER [Suspect]
     Active Substance: DILTIAZEM HYDROCHLORIDE
     Indication: Product used for unknown indication
     Route: 048
  2. CRESTOR [Concomitant]
     Active Substance: ROSUVASTATIN CALCIUM
     Indication: Product used for unknown indication
  3. VONOPRAZAN FUMARATE [Concomitant]
     Active Substance: VONOPRAZAN FUMARATE
     Indication: Product used for unknown indication
  4. METHYLCOBALAMIN [Concomitant]
     Active Substance: METHYLCOBALAMIN
     Indication: Product used for unknown indication
  5. ADETPHOS [Concomitant]
     Active Substance: ADENOSINE TRIPHOSPHATE
     Indication: Product used for unknown indication

REACTIONS (5)
  - Blood glucose decreased [Unknown]
  - Pain in extremity [Unknown]
  - Pain in extremity [Unknown]
  - Oedema [Unknown]
  - Hot flush [Unknown]
